FAERS Safety Report 17628177 (Version 1)
Quarter: 2020Q2

REPORT INFORMATION
  Report Type: Report from Study
  Country: FR (occurrence: FR)
  Receive Date: 20200405
  Receipt Date: 20200405
  Transmission Date: 20200713
  Serious: Yes (Hospitalization, Other)
  Sender: FDA-Public Use
  Company Number: FR-CELLTRION INC.-2020FR020166

PATIENT

DRUGS (3)
  1. IMUREL [AZATHIOPRINE SODIUM] [Concomitant]
     Active Substance: AZATHIOPRINE SODIUM
     Indication: INFLAMMATORY BOWEL DISEASE
     Dosage: UNK
     Route: 048
     Dates: start: 201602
  2. INFLECTRA [Suspect]
     Active Substance: INFLIXIMAB-DYYB
     Indication: CROHN^S DISEASE
     Dosage: 540 MG, EVERY 7 WEEKS
     Dates: start: 201602
  3. INFLECTRA [Suspect]
     Active Substance: INFLIXIMAB-DYYB
     Dosage: UNK
     Dates: start: 20181116

REACTIONS (2)
  - Condition aggravated [Recovered/Resolved]
  - Terminal ileitis [Recovered/Resolved]

NARRATIVE: CASE EVENT DATE: 201811
